FAERS Safety Report 9603594 (Version 2)
Quarter: 2013Q4

REPORT INFORMATION
  Report Type: Spontaneous
  Country: US (occurrence: US)
  Receive Date: 20131007
  Receipt Date: 20131112
  Transmission Date: 20140711
  Serious: No
  Sender: FDA-Public Use
  Company Number: US-PFIZER INC-2013283056

PATIENT
  Sex: Male
  Weight: 68 kg

DRUGS (1)
  1. AROMASIN [Suspect]
     Indication: HORMONE REPLACEMENT THERAPY
     Dosage: UNK, 1X/DAY
     Route: 048
     Dates: start: 201308

REACTIONS (3)
  - Off label use [Unknown]
  - Suspected counterfeit product [Unknown]
  - Drug ineffective for unapproved indication [Unknown]
